FAERS Safety Report 6198268-7 (Version None)
Quarter: 2009Q2

REPORT INFORMATION
  Report Type: 
  Country: None (occurrence: None)
  Receive Date: 20090518
  Receipt Date: 20081223
  Transmission Date: 20091009
  Serious: Yes (Other)
  Sender: FDA-Public Use
  Company Number: 55619

PATIENT
  Sex: Male
  Weight: 16 kg

DRUGS (11)
  1. ACYCLOVIR [Suspect]
     Indication: ENCEPHALITIS
     Dosage: 5MG/ML INTRAVENOUS; 400MG IV Q8H
     Route: 042
     Dates: start: 20080922, end: 20080927
  2. TYLENOL (CAPLET) [Concomitant]
  3. CEFTRIAXONE [Concomitant]
  4. AZITHROMYCIN [Concomitant]
  5. VANCOMYCIN HCL [Concomitant]
  6. BUMEX [Concomitant]
  7. EPINEPHRINE [Concomitant]
  8. HYDRAALAZINE [Concomitant]
  9. PHOSPHENYTOIN [Concomitant]
  10. LEVETIRACETAM [Concomitant]
  11. NOREPINEPHRINE BITARTRATE [Concomitant]

REACTIONS (1)
  - EXTRAVASATION [None]
